FAERS Safety Report 4630676-5 (Version None)
Quarter: 2005Q2

REPORT INFORMATION
  Report Type: 
  Country: None (occurrence: None)
  Receive Date: 20050406
  Receipt Date: 20050321
  Transmission Date: 20051028
  Serious: Yes (Hospitalization, Disabling, Other)
  Sender: FDA-Public Use
  Company Number: US_0503114569

PATIENT
  Age: 62 Year
  Sex: Male
  Weight: 91 kg

DRUGS (8)
  1. HUMULIN 50/50 [Suspect]
     Indication: DIABETES MELLITUS
     Dates: start: 19970101
  2. PERCOCET [Concomitant]
  3. METHOTREXATE SODIUM [Concomitant]
  4. METHYLPREDNISOLONE [Concomitant]
  5. CETIRIZINE HCL [Concomitant]
  6. CLOPIDOGREL BISULFATE [Concomitant]
  7. ASPIRIN [Concomitant]
  8. CEPHALEXIN [Concomitant]

REACTIONS (12)
  - AMNESIA [None]
  - APPLICATION SITE ERYTHEMA [None]
  - APPLICATION SITE IRRITATION [None]
  - BLOOD BLISTER [None]
  - BODY HEIGHT DECREASED [None]
  - FOOT AMPUTATION [None]
  - IMPAIRED HEALING [None]
  - JOINT SWELLING [None]
  - LACERATION [None]
  - LEG AMPUTATION [None]
  - PHARMACEUTICAL PRODUCT COMPLAINT [None]
  - SKIN ULCER [None]
